FAERS Safety Report 11453714 (Version 1)
Quarter: 2015Q3

REPORT INFORMATION
  Report Type: Spontaneous
  Country: US (occurrence: US)
  Receive Date: 20150831
  Receipt Date: 20150831
  Transmission Date: 20151125
  Serious: No
  Sender: FDA-Public Use
  Company Number: US-ELI_LILLY_AND_COMPANY-US201001001967

PATIENT
  Age: 63 Year
  Sex: Female

DRUGS (1)
  1. CYMBALTA [Suspect]
     Active Substance: DULOXETINE HYDROCHLORIDE
     Indication: ANXIETY DISORDER
     Dosage: 30 MG, DAILY (1/D)
     Route: 048
     Dates: end: 20100106

REACTIONS (11)
  - Paraesthesia [Unknown]
  - Ocular discomfort [Unknown]
  - Diarrhoea [Unknown]
  - Dizziness postural [Unknown]
  - Heart rate irregular [Unknown]
  - Drug withdrawal syndrome [Unknown]
  - Head discomfort [Unknown]
  - Vomiting [Unknown]
  - Palpitations [Unknown]
  - Pain in jaw [Unknown]
  - Dizziness [Unknown]

NARRATIVE: CASE EVENT DATE: 201001
